FAERS Safety Report 26129734 (Version 1)
Quarter: 2025Q4

REPORT INFORMATION
  Report Type: Spontaneous
  Country: EU (occurrence: EU)
  Receive Date: 20251208
  Receipt Date: 20251208
  Transmission Date: 20260117
  Serious: Yes (Hospitalization, Other)
  Sender: AMGEN
  Company Number: EU-AMGEN-ITASP2025239523

PATIENT
  Age: 79 Year
  Sex: Male

DRUGS (5)
  1. CARFILZOMIB [Suspect]
     Active Substance: CARFILZOMIB
     Indication: Plasma cell myeloma
     Dosage: 20 MILLIGRAM/SQ. METER, AT A DOSE OF 20 MG/M2 ON DAYS 1 AND 2 OF CYCLE 1, FOLLOWED BY 56 MG/M2 ON SU
     Route: 040
  2. CARFILZOMIB [Suspect]
     Active Substance: CARFILZOMIB
     Dosage: 56 MILLIGRAM/SQ. METER, 56 MILLIGRAM/SQ. METER, ON SUBSEQUENT CYCLES, GIVEN ON DAYS 1, 2, 8, 9, 15,
     Route: 040
  3. CARFILZOMIB [Suspect]
     Active Substance: CARFILZOMIB
     Dosage: 45 MILLIGRAM/SQ. METER, 80% OF THE INITIAL DOSE
     Route: 040
  4. DEXAMETHASONE [Concomitant]
     Active Substance: DEXAMETHASONE
     Indication: Plasma cell myeloma
     Dosage: 20 MILLIGRAM, DAYS 1, 2, 8, 9, 15, 16, 22, AND 23
     Route: 048
  5. ASPIRIN [Concomitant]
     Active Substance: ASPIRIN
     Indication: Prophylaxis
     Dosage: UNK

REACTIONS (6)
  - Plasma cell myeloma recurrent [Unknown]
  - Acute respiratory failure [Recovering/Resolving]
  - C-reactive protein increased [Unknown]
  - Kyphosis [Unknown]
  - Compression fracture [Unknown]
  - Hypotonia [Unknown]
